FAERS Safety Report 6436442-2 (Version None)
Quarter: 2009Q4

REPORT INFORMATION
  Report Type: 
  Country: None (occurrence: None)
  Receive Date: 20091110
  Receipt Date: 20091110
  Transmission Date: 20100525
  Serious: Yes (Other)
  Sender: FDA-Public Use
  Company Number: None

PATIENT
  Age: 54 Year
  Sex: Male
  Weight: 81.6475 kg

DRUGS (1)
  1. ZETIA [Suspect]
     Indication: BLOOD CHOLESTEROL
     Dosage: 1 TABLET -10 MG- DAILY PO
     Route: 048
     Dates: start: 20091014, end: 20091016

REACTIONS (3)
  - ARTHRALGIA [None]
  - BACK PAIN [None]
  - DECREASED ACTIVITY [None]
